FAERS Safety Report 6299666-3 (Version None)
Quarter: 2009Q3

REPORT INFORMATION
  Report Type: 
  Country: None (occurrence: None)
  Receive Date: 20090806
  Receipt Date: 20090729
  Transmission Date: 20100115
  Serious: Yes (Hospitalization, Other)
  Sender: FDA-Public Use
  Company Number: US-AVENTIS-200913435US

PATIENT
  Sex: Female
  Weight: 97.7 kg

DRUGS (5)
  1. LANTUS [Suspect]
     Indication: GESTATIONAL DIABETES
     Route: 058
     Dates: start: 20090407, end: 20090424
  2. HUMALOG [Concomitant]
     Dosage: DOSE: 5 UNITS AT MEAL
     Dates: start: 20090409, end: 20090424
  3. PRENATAL VITAMINS                  /01549301/ [Concomitant]
     Indication: PREGNANCY
     Dosage: DOSE QUANTITY: 1
  4. IRON [Concomitant]
     Dosage: DOSE: UNK
  5. ACTIGALL [Concomitant]
     Dosage: DOSE: UNK

REACTIONS (2)
  - DRUG EXPOSURE DURING PREGNANCY [None]
  - PRECIPITATE LABOUR [None]
